FAERS Safety Report 4715809-4 (Version None)
Quarter: 2005Q3

REPORT INFORMATION
  Report Type: 
  Country: None (occurrence: None)
  Receive Date: 20050718
  Receipt Date: 20050706
  Transmission Date: 20060218
  Serious: Yes (Other)
  Sender: FDA-Public Use
  Company Number: US-GLAXOSMITHKLINE-A0565118A

PATIENT
  Age: 45 Year
  Sex: Male

DRUGS (5)
  1. CITRUCEL CAPLETS [Suspect]
     Indication: GASTROINTESTINAL DISORDER
     Route: 048
     Dates: start: 20050702
  2. LIPITOR [Concomitant]
     Indication: BLOOD CHOLESTEROL INCREASED
     Dosage: 10MG PER DAY
     Route: 048
  3. PLAVIX [Concomitant]
     Indication: ANTICOAGULANT THERAPY
     Dosage: 75MG PER DAY
     Route: 048
  4. ASPIRIN [Concomitant]
     Indication: ANTICOAGULANT THERAPY
     Dosage: 130MG PER DAY
     Route: 048
  5. TOPROL-XL [Concomitant]
     Indication: DRUG USE FOR UNKNOWN INDICATION
     Dosage: 50MG PER DAY
     Route: 048

REACTIONS (1)
  - RECTAL HAEMORRHAGE [None]
